FAERS Safety Report 23267986 (Version 1)
Quarter: 2023Q4

REPORT INFORMATION
  Report Type: Report from Study
  Country: US (occurrence: None)
  Receive Date: 20231206
  Receipt Date: 20231206
  Transmission Date: 20240110
  Serious: Yes (Hospitalization)
  Sender: FDA-Public Use
  Company Number: 2023A270471

PATIENT
  Age: 74 Year
  Sex: Male

DRUGS (1)
  1. BRILINTA [Suspect]
     Active Substance: TICAGRELOR
     Indication: Stent placement
     Route: 048
     Dates: start: 20231114

REACTIONS (3)
  - Dehydration [Recovered/Resolved]
  - Heart rate decreased [Recovered/Resolved]
  - Product communication issue [Unknown]

NARRATIVE: CASE EVENT DATE: 20231114
